FAERS Safety Report 10101292 (Version 2)
Quarter: 2014Q2

REPORT INFORMATION
  Report Type: Spontaneous
  Country: US (occurrence: US)
  Receive Date: 20140424
  Receipt Date: 20140429
  Transmission Date: 20141212
  Serious: No
  Sender: FDA-Public Use
  Company Number: US-PFIZER INC-2014112267

PATIENT
  Age: 58 Year
  Sex: Female
  Weight: 81.63 kg

DRUGS (1)
  1. PREMARIN [Suspect]
     Dosage: 1.25 MG, DAILY
     Route: 048
     Dates: start: 1986

REACTIONS (2)
  - Hot flush [Unknown]
  - Product packaging quantity issue [Unknown]
